FAERS Safety Report 6344061-1 (Version None)
Quarter: 2009Q3

REPORT INFORMATION
  Report Type: 
  Country: None (occurrence: None)
  Receive Date: 20090908
  Receipt Date: 20090831
  Transmission Date: 20100115
  Serious: Yes (Other)
  Sender: FDA-Public Use
  Company Number: US-ALLERGAN-0912188US

PATIENT
  Age: 45 Year
  Sex: Female

DRUGS (10)
  1. BOTOX [Suspect]
     Indication: DYSPHAGIA
     Dosage: UNK
     Route: 030
     Dates: start: 20090101, end: 20090101
  2. BOTOX [Suspect]
     Dosage: UNK
     Route: 030
     Dates: start: 20090201, end: 20090201
  3. AMITIZA [Concomitant]
  4. KAPIDEX [Concomitant]
  5. MIRALAX [Concomitant]
  6. FIBER SUPPLEMENT [Concomitant]
  7. NITROGLYCERIN [Concomitant]
     Indication: OESOPHAGITIS
  8. PERCOCET [Concomitant]
  9. ALPRAZOLAM [Concomitant]
  10. SOMA [Concomitant]

REACTIONS (5)
  - ANXIETY [None]
  - GRAND MAL CONVULSION [None]
  - MUSCULAR WEAKNESS [None]
  - OESOPHAGITIS [None]
  - SYNCOPE [None]
